FAERS Safety Report 21743446 (Version 1)
Quarter: 2022Q4

REPORT INFORMATION
  Report Type: Spontaneous
  Country: IT (occurrence: IT)
  Receive Date: 20221217
  Receipt Date: 20221217
  Transmission Date: 20230112
  Serious: Yes (Other)
  Sender: FDA-Public Use
  Company Number: None

PATIENT
  Sex: Male
  Weight: 72 kg

DRUGS (6)
  1. CARBOPLATIN [Suspect]
     Active Substance: CARBOPLATIN
     Indication: Lung neoplasm malignant
     Dates: start: 20210301, end: 20221130
  2. PEMETREXED [Suspect]
     Active Substance: PEMETREXED
     Indication: Lung neoplasm malignant
     Dosage: 600 MG FOR 15 MINUTES
     Dates: start: 20210301, end: 20221130
  3. PEMBROLIZUMAB [Suspect]
     Active Substance: PEMBROLIZUMAB
     Indication: Lung neoplasm malignant
     Dosage: 200 MG FOR 30 MINUTES
     Dates: start: 20210301, end: 20221130
  4. CORTISONE [Concomitant]
     Active Substance: CORTISONE
     Indication: Drug hypersensitivity
     Dosage: TAKEN WITHIN 3 DAYS BEFORE AND AFTER INFUSION
     Dates: start: 202103, end: 20221129
  5. DEXAMETHASONE [Concomitant]
     Active Substance: DEXAMETHASONE
     Indication: Drug hypersensitivity
     Dosage: 8 MG FOR 15 MINUTES
     Dates: start: 20210301, end: 20221130
  6. ONDANSETRON [Concomitant]
     Active Substance: ONDANSETRON
     Indication: Nausea
     Dosage: 8 MG FOR 15 MINUTES
     Dates: start: 20210301, end: 20221130

REACTIONS (4)
  - Dysentery [Recovered/Resolved]
  - Constipation [Not Recovered/Not Resolved]
  - Pyrexia [Recovering/Resolving]
  - Fatigue [Recovering/Resolving]

NARRATIVE: CASE EVENT DATE: 20210301
